FAERS Safety Report 10014971 (Version 1)
Quarter: 2014Q1

REPORT INFORMATION
  Report Type: Spontaneous
  Country: ES (occurrence: ES)
  Receive Date: 20140317
  Receipt Date: 20140317
  Transmission Date: 20141002
  Serious: Yes (Other)
  Sender: FDA-Public Use
  Company Number: ES-BAYER-2014-033613

PATIENT
  Age: 67 Year
  Sex: Female

DRUGS (1)
  1. ACTIRA [Suspect]
     Indication: RESPIRATORY TRACT INFECTION
     Dosage: UNK
     Route: 048
     Dates: start: 20140204, end: 20140204

REACTIONS (3)
  - Conjunctival hyperaemia [Recovered/Resolved]
  - Respiratory distress [Recovered/Resolved]
  - Cough [Recovered/Resolved]
